FAERS Safety Report 8366222-2 (Version None)
Quarter: 2012Q2

REPORT INFORMATION
  Report Type: 
  Country: None (occurrence: None)
  Receive Date: 20120517
  Receipt Date: 20120511
  Transmission Date: 20120825
  Serious: Yes (Other)
  Sender: FDA-Public Use
  Company Number: PHEH2012US009979

PATIENT
  Sex: Female

DRUGS (1)
  1. RECLAST [Suspect]
     Dosage: UNK UKN, UNK
     Route: 042
     Dates: start: 20120510

REACTIONS (13)
  - DYSPNOEA [None]
  - DIARRHOEA [None]
  - FALL [None]
  - HYPOPHAGIA [None]
  - BONE PAIN [None]
  - MALAISE [None]
  - HIP FRACTURE [None]
  - MYALGIA [None]
  - HEADACHE [None]
  - ARTHRALGIA [None]
  - PYREXIA [None]
  - INFLUENZA LIKE ILLNESS [None]
  - APHASIA [None]
